FAERS Safety Report 6646162-7 (Version None)
Quarter: 2010Q1

REPORT INFORMATION
  Report Type: 
  Country: None (occurrence: None)
  Receive Date: 20100323
  Receipt Date: 20100315
  Transmission Date: 20100710
  Serious: Yes (Death, Hospitalization)
  Sender: FDA-Public Use
  Company Number: JP-ROCHE-635532

PATIENT
  Sex: Male
  Weight: 60 kg

DRUGS (28)
  1. TOCILIZUMAB [Suspect]
     Indication: RHEUMATOID ARTHRITIS
     Route: 041
     Dates: start: 20080626, end: 20080626
  2. TOCILIZUMAB [Suspect]
     Route: 041
     Dates: start: 20080819, end: 20080819
  3. TOCILIZUMAB [Suspect]
     Route: 041
     Dates: start: 20081014, end: 20081014
  4. TOCILIZUMAB [Suspect]
     Route: 041
     Dates: start: 20081209, end: 20081209
  5. TOCILIZUMAB [Suspect]
     Dosage: START DATE: 2009
     Route: 041
     Dates: start: 20090328, end: 20090328
  6. TOCILIZUMAB [Suspect]
     Dosage: DISCONTINUED.
     Route: 041
     Dates: start: 20090423, end: 20090423
  7. PREDONINE [Suspect]
     Indication: RHEUMATOID ARTHRITIS
     Route: 048
  8. PREDONINE [Suspect]
     Route: 048
  9. PREDNISOLONE [Suspect]
     Indication: RHEUMATOID ARTHRITIS
     Dosage: FORM: PERORAL AGENT
     Route: 048
     Dates: start: 20080410
  10. URSO 250 [Concomitant]
     Route: 048
  11. ALLOPURINOL [Concomitant]
     Dosage: DRUG: LENDORMIN D
     Route: 048
  12. MAGNESIUM OXIDE [Concomitant]
     Route: 048
     Dates: end: 20090403
  13. MAGNESIUM OXIDE [Concomitant]
     Route: 048
     Dates: start: 20090404, end: 20090101
  14. BIOFERMIN [Concomitant]
     Route: 048
     Dates: end: 20090403
  15. MUCOSIL-10 [Concomitant]
     Route: 048
     Dates: end: 20090403
  16. OMEPRAL [Concomitant]
     Dosage: FORM: ENTERIC
     Route: 048
     Dates: end: 20090403
  17. DEPAS [Concomitant]
     Route: 048
  18. LENDORMIN [Concomitant]
     Route: 048
  19. LENDORMIN [Concomitant]
     Route: 048
  20. FAMOTIDINE [Concomitant]
     Dosage: DRUG: BLOSTAR M
     Route: 048
     Dates: end: 20090403
  21. FELBINAC [Concomitant]
     Dosage: FORM: TAPE, DOSAGE ADJUSTED, DRUG: SELTOUCH
     Route: 061
     Dates: end: 20090403
  22. ALLOPURINOL [Concomitant]
     Route: 048
  23. WARKMIN [Concomitant]
     Route: 048
     Dates: start: 20090328, end: 20090101
  24. ALENDRONATE SODIUM [Concomitant]
     Route: 048
     Dates: start: 20090328, end: 20090101
  25. ELCITONIN [Concomitant]
     Route: 058
     Dates: start: 20090328, end: 20090101
  26. LANSOPRAZOLE [Concomitant]
     Route: 048
     Dates: start: 20090404, end: 20090101
  27. MUCODYNE [Concomitant]
     Dosage: FORM: PERORAL AGENT
     Route: 048
     Dates: start: 20090404, end: 20090101
  28. LOXONIN [Concomitant]
     Dosage: FORM: TAPE, STOP DATE: 2009.
     Route: 061
     Dates: start: 20090404

REACTIONS (5)
  - CELLULITIS [None]
  - DEHYDRATION [None]
  - LUNG INFECTION PSEUDOMONAL [None]
  - PNEUMONIA STAPHYLOCOCCAL [None]
  - SEPTIC SHOCK [None]
